FAERS Safety Report 25619508 (Version 1)
Quarter: 2025Q3

REPORT INFORMATION
  Report Type: Spontaneous
  Country: JP (occurrence: JP)
  Receive Date: 20250729
  Receipt Date: 20250729
  Transmission Date: 20251020
  Serious: Yes (Hospitalization)
  Sender: EISAI
  Company Number: JP-Eisai-202504074_DVG_P_1

PATIENT
  Sex: Female

DRUGS (8)
  1. DAYVIGO [Suspect]
     Active Substance: LEMBOREXANT
     Indication: Product used for unknown indication
  2. DAYVIGO [Suspect]
     Active Substance: LEMBOREXANT
  3. DAYVIGO [Suspect]
     Active Substance: LEMBOREXANT
  4. DAYVIGO [Suspect]
     Active Substance: LEMBOREXANT
  5. DILTIAZEM HYDROCHLORIDE [Interacting]
     Active Substance: DILTIAZEM HYDROCHLORIDE
     Indication: Product used for unknown indication
  6. TRAZODONE HYDROCHLORIDE [Concomitant]
     Active Substance: TRAZODONE HYDROCHLORIDE
     Indication: Product used for unknown indication
  7. TRAZODONE HYDROCHLORIDE [Concomitant]
     Active Substance: TRAZODONE HYDROCHLORIDE
  8. TRAZODONE HYDROCHLORIDE [Concomitant]
     Active Substance: TRAZODONE HYDROCHLORIDE

REACTIONS (4)
  - Psychiatric symptom [Recovered/Resolved]
  - Off label use [Unknown]
  - Drug interaction [Unknown]
  - Somnolence [Recovered/Resolved]
